FAERS Safety Report 5132381-8 (Version None)
Quarter: 2006Q4

REPORT INFORMATION
  Report Type: 
  Country: None (occurrence: None)
  Receive Date: 20061020
  Receipt Date: 20061020
  Transmission Date: 20070319
  Serious: No
  Sender: FDA-Public Use
  Company Number: None

PATIENT
  Age: 23 Year
  Sex: Male

DRUGS (1)
  1. CHANTIX [Suspect]
     Indication: SMOKING CESSATION THERAPY
     Dosage: PO
     Route: 048
     Dates: start: 20060905, end: 20061018

REACTIONS (3)
  - DRY MOUTH [None]
  - POLLAKIURIA [None]
  - THIRST [None]
